FAERS Safety Report 16386801 (Version 2)
Quarter: 2019Q3

REPORT INFORMATION
  Report Type: Spontaneous
  Country: IT (occurrence: IT)
  Receive Date: 20190604
  Receipt Date: 20190918
  Transmission Date: 20191004
  Serious: Yes (Hospitalization)
  Sender: FDA-Public Use
  Company Number: IT-SA-2019SA143198

PATIENT
  Age: 80 Year
  Sex: Female

DRUGS (6)
  1. PERINDOPRIL [Concomitant]
     Active Substance: PERINDOPRIL
     Dosage: UNK, UNK
     Route: 065
  2. PLAVIX [Suspect]
     Active Substance: CLOPIDOGREL BISULFATE
     Indication: ANTIPLATELET THERAPY
     Dosage: 75 MG, QD
     Route: 048
     Dates: start: 20190101, end: 20190327
  3. MELOXICAM. [Suspect]
     Active Substance: MELOXICAM
     Indication: HYPERTENSION
     Dosage: 15 MG, QD
     Route: 048
     Dates: start: 20190101, end: 20190327
  4. AMILORIDE HYDROCHLORIDE/HYDROCHLOROTHIAZIDE [Suspect]
     Active Substance: AMILORIDE HYDROCHLORIDE\HYDROCHLOROTHIAZIDE
     Indication: HYPERTENSION
     Dosage: 55 MG, QD
     Route: 048
     Dates: start: 20190101, end: 20190327
  5. TORVAST [Concomitant]
     Active Substance: ATORVASTATIN
     Dosage: UNK UNK, UNK
     Route: 065
  6. CONGESCOR [Concomitant]
     Active Substance: BISOPROLOL
     Dosage: UNK UNK, UNK
     Route: 065

REACTIONS (2)
  - Confabulation [Recovering/Resolving]
  - Confusional state [Recovering/Resolving]

NARRATIVE: CASE EVENT DATE: 20190327
